FAERS Safety Report 8423022-2 (Version None)
Quarter: 2012Q2

REPORT INFORMATION
  Report Type: 
  Country: None (occurrence: None)
  Receive Date: 20120608
  Receipt Date: 20120531
  Transmission Date: 20120825
  Serious: Yes (Hospitalization)
  Sender: FDA-Public Use
  Company Number: FR-JNJFOC-20120604146

PATIENT
  Sex: Female
  Weight: 70 kg

DRUGS (14)
  1. DEXAMETHASONE [Concomitant]
  2. MORPHINE [Concomitant]
  3. XARELTO [Suspect]
     Indication: THROMBOSIS PROPHYLAXIS
     Route: 048
     Dates: start: 20120306, end: 20120328
  4. DIPRIVAN [Concomitant]
  5. NIMBEX [Concomitant]
  6. XARELTO [Suspect]
     Indication: HIP ARTHROPLASTY
     Route: 048
     Dates: start: 20120306, end: 20120328
  7. MIDAZOLAM HCL [Concomitant]
  8. NEXIUM [Concomitant]
  9. ACUPAN [Concomitant]
  10. DROPERIDOL [Concomitant]
  11. ACETAMINOPHEN [Concomitant]
  12. VENOFER [Concomitant]
  13. SUFENTANIL CITRATE [Concomitant]
  14. KETOPROFEN [Concomitant]

REACTIONS (1)
  - MANIA [None]
